FAERS Safety Report 5402408-4 (Version None)
Quarter: 2007Q3

REPORT INFORMATION
  Report Type: 
  Country: None (occurrence: None)
  Receive Date: 20070730
  Receipt Date: 20070730
  Transmission Date: 20080115
  Serious: Yes (Life-Threatening, Hospitalization, Other)
  Sender: FDA-Public Use
  Company Number: None

PATIENT
  Age: 44 Year
  Sex: Female
  Weight: 52.1637 kg

DRUGS (2)
  1. KEPPRA [Suspect]
     Indication: COMPLEX PARTIAL SEIZURES
     Dosage: 1500 MG BID PO
     Route: 048
     Dates: start: 20061115, end: 20061220
  2. KEPPRA [Suspect]
     Indication: PETIT MAL EPILEPSY
     Dosage: 1500 MG BID PO
     Route: 048
     Dates: start: 20061115, end: 20061220

REACTIONS (10)
  - ABNORMAL BEHAVIOUR [None]
  - AFFECT LABILITY [None]
  - ANGER [None]
  - DEPERSONALISATION [None]
  - HALLUCINATION [None]
  - HYPOAESTHESIA [None]
  - MENTAL DISORDER [None]
  - PSYCHOTIC DISORDER [None]
  - REPETITIVE SPEECH [None]
  - VISUAL DISTURBANCE [None]
